FAERS Safety Report 14443851 (Version 1)
Quarter: 2018Q1

REPORT INFORMATION
  Report Type: Spontaneous
  Country: US (occurrence: US)
  Receive Date: 20180125
  Receipt Date: 20180125
  Transmission Date: 20180509
  Serious: Yes (Death, Hospitalization)
  Sender: FDA-Public Use
  Company Number: None

PATIENT
  Age: 65 Year
  Sex: Female
  Weight: 90 kg

DRUGS (2)
  1. CARBOPLATIN. [Suspect]
     Active Substance: CARBOPLATIN
     Dates: end: 20180102
  2. ETOPOSIDE (VP-16) [Suspect]
     Active Substance: ETOPOSIDE
     Dates: end: 20180104

REACTIONS (8)
  - Pancytopenia [None]
  - Pneumonia [None]
  - Staphylococcal infection [None]
  - Somnolence [None]
  - Nausea [None]
  - Diarrhoea [None]
  - Vomiting [None]
  - Blood culture positive [None]

NARRATIVE: CASE EVENT DATE: 20180113
